FAERS Safety Report 12886213 (Version 4)
Quarter: 2017Q4

REPORT INFORMATION
  Report Type: Report from Study
  Country: US (occurrence: US)
  Receive Date: 20161026
  Receipt Date: 20171128
  Transmission Date: 20180320
  Serious: Yes (Hospitalization, Other)
  Sender: FDA-Public Use
  Company Number: US-ARIAD-2016US007151

PATIENT
  Age: 39 Year
  Sex: Male

DRUGS (3)
  1. PONATINIB [Suspect]
     Active Substance: PONATINIB
     Dosage: 15 MG, QD
     Route: 048
  2. PONATINIB [Suspect]
     Active Substance: PONATINIB
     Indication: CHRONIC MYELOID LEUKAEMIA
     Dosage: 15 MG, QD
     Route: 048
     Dates: start: 20140911
  3. PONATINIB [Suspect]
     Active Substance: PONATINIB
     Dosage: 15 MG, QD
     Route: 048

REACTIONS (19)
  - Myocardial infarction [Unknown]
  - Pain [Unknown]
  - Blood glucose decreased [Unknown]
  - Loss of consciousness [Unknown]
  - Dizziness [Unknown]
  - Back pain [Unknown]
  - Anxiety [Not Recovered/Not Resolved]
  - Abdominal pain upper [Unknown]
  - Gait inability [Unknown]
  - Nausea [Unknown]
  - Hyperhidrosis [Unknown]
  - Large intestine polyp [Unknown]
  - Seizure [Unknown]
  - White blood cell disorder [Unknown]
  - Chest pain [Unknown]
  - Intentional self-injury [Unknown]
  - Arthralgia [Unknown]
  - Insomnia [Unknown]
  - Constipation [Unknown]

NARRATIVE: CASE EVENT DATE: 201704
